FAERS Safety Report 9522410 (Version 1)
Quarter: 2013Q3

REPORT INFORMATION
  Report Type: Spontaneous
  Country: US (occurrence: None)
  Receive Date: 20130911
  Receipt Date: 20130911
  Transmission Date: 20140515
  Serious: No
  Sender: FDA-Public Use
  Company Number: AEUSA201300138

PATIENT
  Age: 62 Year
  Sex: Male
  Weight: 71.67 kg

DRUGS (9)
  1. GAMUNEX-C (10 PCT) [Suspect]
     Indication: POLYNEUROPATHY
     Route: 042
     Dates: start: 201103
  2. VITAMIN D [Concomitant]
  3. FISH OIL [Concomitant]
  4. VITAMIN E [Concomitant]
  5. MVI PEDIATRIC [Concomitant]
  6. ALPHA LIPOIC ACID [Concomitant]
  7. FLAXSEED PRIMROSE OIL [Concomitant]
  8. PARACETAMOL [Concomitant]
  9. BENADRYL [Concomitant]

REACTIONS (2)
  - Urticaria [None]
  - Chills [None]
